FAERS Safety Report 7242066-X (Version None)
Quarter: 2011Q1

REPORT INFORMATION
  Report Type: 
  Country: None (occurrence: None)
  Receive Date: 20110124
  Receipt Date: 20110118
  Transmission Date: 20110831
  Serious: Yes (Life-Threatening, Hospitalization)
  Sender: FDA-Public Use
  Company Number: PHHO2009FR15685

PATIENT
  Sex: Male
  Weight: 88 kg

DRUGS (6)
  1. ZOLEDRONATE [Suspect]
     Indication: BONE SARCOMA
     Dosage: 20 MG, UNK
     Route: 042
     Dates: start: 20090409, end: 20091119
  2. CISPLATIN [Concomitant]
     Indication: CHEMOTHERAPY
     Dosage: 217 MG
     Route: 042
     Dates: start: 20090406, end: 20090629
  3. IFOSFAMIDE [Suspect]
     Indication: CHEMOTHERAPY
     Dosage: 8820 MG
     Route: 042
     Dates: start: 20090408, end: 20091119
  4. FOSFOCINE [Suspect]
  5. ADRIAMYCIN PFS [Concomitant]
     Indication: CHEMOTHERAPY
     Dosage: 130.2 MG
     Route: 042
     Dates: start: 20090406, end: 20090629
  6. ETOPOSIDE [Suspect]
     Indication: CHEMOTHERAPY
     Dosage: 207 MG, DAILY
     Route: 042
     Dates: start: 20091116, end: 20091118

REACTIONS (24)
  - ORGAN FAILURE [None]
  - RESPIRATORY FAILURE [None]
  - PYREXIA [None]
  - HYPOXIA [None]
  - TACHYCARDIA [None]
  - URINARY TRACT INFECTION [None]
  - BONE SARCOMA [None]
  - PULMONARY INTERSTITIAL EMPHYSEMA SYNDROME [None]
  - DURAL TEAR [None]
  - VENTRICULAR HYPOKINESIA [None]
  - HYPOTENSION [None]
  - INTRACRANIAL HYPOTENSION [None]
  - CIRCULATORY COLLAPSE [None]
  - HYPERTHERMIA [None]
  - SURGERY [None]
  - DYSPNOEA [None]
  - HYPERNATRAEMIA [None]
  - STAPHYLOCOCCAL SEPSIS [None]
  - SEPTIC SHOCK [None]
  - PLEURAL EFFUSION [None]
  - OSTEOSYNTHESIS [None]
  - SPINAL OPERATION [None]
  - CEREBROSPINAL FLUID DRAINAGE [None]
  - HYPOKALAEMIA [None]
